FAERS Safety Report 9357929 (Version 2)
Quarter: 2013Q2

REPORT INFORMATION
  Report Type: Spontaneous
  Country: JP (occurrence: JP)
  Receive Date: 20130620
  Receipt Date: 20130628
  Transmission Date: 20140414
  Serious: Yes (Hospitalization, Other)
  Sender: FDA-Public Use
  Company Number: JP-ASTRAZENECA-2013SE46919

PATIENT
  Age: 27 Year
  Sex: Female

DRUGS (8)
  1. SEROQUEL [Suspect]
     Route: 048
     Dates: start: 20130611, end: 20130611
  2. RISPERIDONE [Suspect]
     Route: 048
  3. DEPAKENE-R [Concomitant]
  4. ABILIFY [Concomitant]
  5. SHUPRASE [Concomitant]
  6. DORAL [Concomitant]
  7. RIVOTRIL [Concomitant]
  8. HIBERNA [Concomitant]

REACTIONS (3)
  - Intentional overdose [Unknown]
  - Suicide attempt [Recovered/Resolved]
  - Depressed level of consciousness [Recovered/Resolved]
